FAERS Safety Report 8112446-9 (Version None)
Quarter: 2012Q1

REPORT INFORMATION
  Report Type: 
  Country: None (occurrence: None)
  Receive Date: 20120203
  Receipt Date: 20120201
  Transmission Date: 20120608
  Serious: Yes (Life-Threatening, Hospitalization, Other)
  Sender: FDA-Public Use
  Company Number: DE-ROCHE-767237

PATIENT
  Sex: Male
  Weight: 70 kg

DRUGS (1)
  1. XELODA [Suspect]
     Indication: COLON CANCER
     Dosage: 2X1400MG
     Route: 048
     Dates: start: 20110125, end: 20111204

REACTIONS (7)
  - PNEUMONIA [None]
  - RENAL FAILURE ACUTE [None]
  - ILEUS [None]
  - ILEITIS [None]
  - MENTAL DISORDER [None]
  - MUCOSAL INFLAMMATION [None]
  - COLITIS [None]
